FAERS Safety Report 7065203-9 (Version None)
Quarter: 2010Q4

REPORT INFORMATION
  Report Type: 
  Country: None (occurrence: None)
  Receive Date: 20101027
  Receipt Date: 20101015
  Transmission Date: 20110411
  Serious: Yes (Death)
  Sender: FDA-Public Use
  Company Number: GB-WATSON-2010-13971

PATIENT
  Age: 22 Week

DRUGS (4)
  1. PREDNISOLONE [Suspect]
     Indication: DRUG EXPOSURE DURING PREGNANCY
     Dosage: 20 MG, DAILY
     Route: 064
  2. TACROLIMUS [Suspect]
     Indication: DRUG EXPOSURE DURING PREGNANCY
     Dosage: UNK
     Route: 064
  3. AZATHIOPRINE [Suspect]
     Indication: DRUG EXPOSURE DURING PREGNANCY
     Dosage: 125 MG, DAILY
     Route: 064
  4. MYCOPHENOLATE MOFETIL [Suspect]
     Indication: DRUG EXPOSURE DURING PREGNANCY
     Dosage: UNK
     Route: 064

REACTIONS (1)
  - INTRA-UTERINE DEATH [None]
